FAERS Safety Report 4296479-9 (Version None)
Quarter: 2004Q1

REPORT INFORMATION
  Report Type: 
  Country: None (occurrence: None)
  Receive Date: 20040217
  Receipt Date: 20040202
  Transmission Date: 20041129
  Serious: Yes (Hospitalization)
  Sender: FDA-Public Use
  Company Number: PHBS2004CN01611

PATIENT
  Age: 38 Year
  Sex: Male
  Weight: 63 kg

DRUGS (1)
  1. VOTALIN [Suspect]
     Indication: PAIN IN EXTREMITY
     Dosage: 75 MG/DAY
     Route: 048

REACTIONS (4)
  - ANXIETY [None]
  - ASTHENIA [None]
  - HYPERHIDROSIS [None]
  - SOMNOLENCE [None]
